FAERS Safety Report 7028546-0 (Version None)
Quarter: 2010Q4

REPORT INFORMATION
  Report Type: 
  Country: None (occurrence: None)
  Receive Date: 20101005
  Receipt Date: 20100928
  Transmission Date: 20110411
  Serious: Yes (Hospitalization)
  Sender: FDA-Public Use
  Company Number: IT-JNJFOC-20100704287

PATIENT
  Sex: Female

DRUGS (7)
  1. HALDOL [Suspect]
     Indication: ACUTE PSYCHOSIS
     Route: 048
  2. ELOPRAM [Suspect]
     Indication: POSTPARTUM DEPRESSION
     Route: 048
  3. SEROQUEL [Suspect]
     Indication: ACUTE PSYCHOSIS
     Route: 065
  4. DOSTINEX [Concomitant]
     Indication: PRODUCT USED FOR UNKNOWN INDICATION
     Route: 065
  5. AKINETON [Concomitant]
     Indication: PRODUCT USED FOR UNKNOWN INDICATION
     Route: 065
  6. BROMAZEPAM [Concomitant]
     Indication: PRODUCT USED FOR UNKNOWN INDICATION
     Route: 065
  7. EUTIROX [Concomitant]
     Indication: PRODUCT USED FOR UNKNOWN INDICATION
     Route: 065

REACTIONS (2)
  - HEPATITIS ACUTE [None]
  - HYPERTRANSAMINASAEMIA [None]
